FAERS Safety Report 24275743 (Version 1)
Quarter: 2024Q3

REPORT INFORMATION
  Report Type: Spontaneous
  Country: SG (occurrence: SG)
  Receive Date: 20240903
  Receipt Date: 20240903
  Transmission Date: 20241017
  Serious: Yes (Other)
  Sender: UCB
  Company Number: SG-UCBSA-2024044681

PATIENT
  Age: 38 Year
  Sex: Male

DRUGS (1)
  1. KEPPRA [Suspect]
     Active Substance: LEVETIRACETAM
     Indication: Product used for unknown indication
     Dosage: UNK

REACTIONS (2)
  - Flushing [Unknown]
  - Hypotension [Unknown]

NARRATIVE: CASE EVENT DATE: 20240609
